FAERS Safety Report 9498410 (Version 1)
Quarter: 2013Q3

REPORT INFORMATION
  Report Type: Spontaneous
  Country: US (occurrence: US)
  Receive Date: 20130904
  Receipt Date: 20130904
  Transmission Date: 20140515
  Serious: Yes (Death)
  Sender: FDA-Public Use
  Company Number: US-GLAXOSMITHKLINE-A1039587A

PATIENT
  Age: 60 Year
  Sex: Female

DRUGS (8)
  1. TYKERB [Suspect]
     Indication: BREAST CANCER
     Dosage: 750MG PER DAY
     Route: 048
     Dates: start: 20130813
  2. PHENYTOIN [Concomitant]
  3. XELODA [Concomitant]
  4. NAMENDA [Concomitant]
  5. ONDANSETRON [Concomitant]
  6. KEPPRA [Concomitant]
  7. LETROZOLE [Concomitant]
  8. HYDROMORPHONE [Concomitant]

REACTIONS (1)
  - Disease progression [Fatal]
